FAERS Safety Report 18330423 (Version 1)
Quarter: 2020Q3

REPORT INFORMATION
  Report Type: Spontaneous
  Country: IT (occurrence: IT)
  Receive Date: 20200930
  Receipt Date: 20200930
  Transmission Date: 20201103
  Serious: Yes (Other)
  Sender: FDA-Public Use
  Company Number: IT-FRESENIUS KABI-FK202010123

PATIENT
  Age: 71 Year
  Sex: Male

DRUGS (10)
  1. IRINOTECAN (MANUFACTURER UNKNOWN) [Suspect]
     Active Substance: IRINOTECAN
     Indication: COLORECTAL CANCER
     Route: 065
  2. IRINOTECAN (MANUFACTURER UNKNOWN) [Suspect]
     Active Substance: IRINOTECAN
     Dosage: D1, 15, EVERY 28 DAYS
     Route: 065
  3. AFLIBERCEPT [Suspect]
     Active Substance: AFLIBERCEPT
     Dosage: D1, 15
     Route: 065
  4. CAPECITABINE. [Suspect]
     Active Substance: CAPECITABINE
     Indication: COLORECTAL CANCER
     Dosage: BID CYCLES REPEATED EVERY 21 DAYS FOR 6 CYCLES, D1?14
     Route: 065
  5. FLUOROURACIL. [Suspect]
     Active Substance: FLUOROURACIL
     Indication: K-RAS GENE MUTATION
     Dosage: QD, D1?4, 15?18, CYCLES REPEATED EVERY 28 DAYS
     Route: 065
  6. AFLIBERCEPT [Suspect]
     Active Substance: AFLIBERCEPT
     Indication: K-RAS GENE MUTATION
     Dosage: D1,15, CYCLES REPEATED EVERY 28 DAYS
     Route: 065
  7. CAPECITABINE. [Suspect]
     Active Substance: CAPECITABINE
     Indication: K-RAS GENE MUTATION
  8. IRINOTECAN (MANUFACTURER UNKNOWN) [Suspect]
     Active Substance: IRINOTECAN
     Indication: K-RAS GENE MUTATION
     Dosage: D1,15, CYCLES REPEATED EVERY 28 DAYS
     Route: 065
  9. FLUOROURACIL. [Suspect]
     Active Substance: FLUOROURACIL
     Indication: COLORECTAL CANCER
  10. AFLIBERCEPT [Suspect]
     Active Substance: AFLIBERCEPT
     Indication: COLORECTAL CANCER
     Route: 065

REACTIONS (10)
  - Palmar-plantar erythrodysaesthesia syndrome [Unknown]
  - Blood bilirubin increased [Unknown]
  - Alopecia [Unknown]
  - Epistaxis [Unknown]
  - Asthenia [Unknown]
  - Hypertension [Unknown]
  - Mucosal inflammation [Unknown]
  - Dysphonia [Unknown]
  - Diarrhoea [Unknown]
  - Rhinitis [Unknown]
